FAERS Safety Report 9821053 (Version 3)
Quarter: 2014Q1

REPORT INFORMATION
  Report Type: Spontaneous
  Country: US (occurrence: US)
  Receive Date: 20140116
  Receipt Date: 20140130
  Transmission Date: 20141002
  Serious: Yes (Hospitalization)
  Sender: FDA-Public Use
  Company Number: US-JNJFOC-20140106025

PATIENT
  Age: 57 Year
  Sex: Female
  Weight: 52.5 kg

DRUGS (21)
  1. XARELTO [Suspect]
     Indication: KNEE ARTHROPLASTY
     Route: 048
     Dates: start: 20140107
  2. XARELTO [Suspect]
     Indication: KNEE ARTHROPLASTY
     Route: 048
     Dates: start: 20130821, end: 20140102
  3. XARELTO [Suspect]
     Indication: THROMBOSIS PROPHYLAXIS
     Route: 048
     Dates: start: 20140107
  4. XARELTO [Suspect]
     Indication: THROMBOSIS PROPHYLAXIS
     Route: 048
     Dates: start: 20130821, end: 20140102
  5. DEXAMETHASONE [Suspect]
     Indication: PRODUCT USED FOR UNKNOWN INDICATION
     Route: 065
     Dates: start: 20131003, end: 20140102
  6. IBRUTINIB [Concomitant]
     Indication: PRODUCT USED FOR UNKNOWN INDICATION
     Route: 065
     Dates: start: 20131001, end: 20140104
  7. HEPLOCK [Concomitant]
     Route: 042
     Dates: start: 20131022
  8. SODIUM CHLORIDE [Concomitant]
     Indication: PYREXIA
     Route: 042
     Dates: start: 20131023, end: 20131023
  9. ACETAMINOPHEN [Concomitant]
     Indication: PYREXIA
     Route: 048
     Dates: start: 20131023, end: 20131023
  10. SODIUM CHLORIDE [Concomitant]
     Route: 042
     Dates: start: 20131023, end: 20131023
  11. HYDRALAZINE HYDROCHLORIDE\HYDROCHLOROTHIAZIDE [Concomitant]
     Indication: HYPERTENSION
     Route: 048
     Dates: start: 20131002
  12. MULTIVITAMINS [Concomitant]
     Indication: ROUTINE HEALTH MAINTENANCE
     Route: 048
     Dates: start: 20130506
  13. ACYCLOVIR [Concomitant]
     Indication: ANTIVIRAL PROPHYLAXIS
     Route: 048
     Dates: start: 20130705
  14. ASTELIN [Concomitant]
     Indication: MULTIPLE ALLERGIES
     Route: 048
     Dates: start: 20130726
  15. LOTENSIN [Concomitant]
     Indication: HYPERTENSION
     Route: 048
     Dates: start: 20111024
  16. NEXIUM [Concomitant]
     Indication: GASTROOESOPHAGEAL REFLUX DISEASE
     Route: 048
     Dates: start: 20101012
  17. LANTUS [Concomitant]
     Indication: DIABETES MELLITUS
     Route: 058
     Dates: start: 20120622
  18. HUMALOG [Concomitant]
     Indication: DIABETES MELLITUS
     Dosage: 1-10 UNITS
     Route: 058
     Dates: start: 20130725
  19. METFORMIN [Concomitant]
     Indication: DIABETES MELLITUS
     Route: 048
     Dates: start: 20130402
  20. ZOCOR [Concomitant]
     Indication: HYPERLIPIDAEMIA
     Route: 048
     Dates: start: 20130924
  21. SODIUM CHLORIDE [Concomitant]
     Route: 042
     Dates: start: 20131022

REACTIONS (5)
  - Colitis [Recovered/Resolved]
  - Gastrointestinal haemorrhage [Recovering/Resolving]
  - Haemoglobin decreased [Unknown]
  - Dizziness [Unknown]
  - Asthenia [Unknown]
